FAERS Safety Report 7035949-7 (Version None)
Quarter: 2010Q4

REPORT INFORMATION
  Report Type: 
  Country: None (occurrence: None)
  Receive Date: 20101007
  Receipt Date: 20101007
  Transmission Date: 20110411
  Serious: Yes (Hospitalization)
  Sender: FDA-Public Use
  Company Number: None

PATIENT
  Sex: Female
  Weight: 10.2 kg

DRUGS (3)
  1. IRINOTECAN HCL [Suspect]
     Indication: NEUROBLASTOMA
     Dosage: 18 MG 5X EVERY 21 DAYS IVPB
     Route: 042
     Dates: start: 20100706
  2. VELCADE [Suspect]
     Indication: NEUROBLASTOMA
     Dosage: 0.55 MG 4X EVERY 21 DAYS IVP
     Route: 042
     Dates: start: 20100706
  3. UNKNOWN ANTIBIOTIC [Concomitant]

REACTIONS (3)
  - DIARRHOEA [None]
  - PYREXIA [None]
  - VOMITING [None]
